FAERS Safety Report 18763303 (Version 1)
Quarter: 2021Q1

REPORT INFORMATION
  Report Type: Spontaneous
  Country: NO (occurrence: NO)
  Receive Date: 20210120
  Receipt Date: 20210120
  Transmission Date: 20210419
  Serious: Yes (Hospitalization, Disabling, Other)
  Sender: FDA-Public Use
  Company Number: NO-TEVA-2021-NO-1870522

PATIENT
  Sex: Female

DRUGS (6)
  1. OLANZAPINE TEVA TAB 7,5 MG [Suspect]
     Active Substance: OLANZAPINE
     Indication: RESTLESSNESS
     Dosage: 7.5MG
     Dates: start: 2020, end: 20201204
  2. CIRCADIN DEPOTTAB 2 MG [Concomitant]
     Active Substance: MELATONIN
     Dosage: PATIENT ONLY USES PHENERGAN AND CERAZETTE, 2MG
     Dates: start: 2020
  3. ZYPREXA [Suspect]
     Active Substance: OLANZAPINE
     Indication: PRODUCT USED FOR UNKNOWN INDICATION
     Route: 048
     Dates: start: 2005
  4. OLANZAPINE TEVA TAB 7,5 MG [Suspect]
     Active Substance: OLANZAPINE
     Indication: ANXIETY
  5. CERAZETTE [Concomitant]
  6. PHENERGAN [Concomitant]
     Active Substance: PROMETHAZINE HYDROCHLORIDE

REACTIONS (6)
  - Reading disorder [Recovered/Resolved]
  - Disturbance in attention [Recovered/Resolved]
  - Akathisia [Recovered/Resolved]
  - Hypogeusia [Recovering/Resolving]
  - Tongue injury [Recovering/Resolving]
  - Nerve injury [Recovering/Resolving]

NARRATIVE: CASE EVENT DATE: 2005
